FAERS Safety Report 6311741-3 (Version None)
Quarter: 2009Q3

REPORT INFORMATION
  Report Type: 
  Country: None (occurrence: None)
  Receive Date: 20090817
  Receipt Date: 20090811
  Transmission Date: 20100115
  Serious: Yes (Death, Life-Threatening, Hospitalization)
  Sender: FDA-Public Use
  Company Number: FR-ASTRAZENECA-2009SE07502

PATIENT
  Age: 75 Year
  Sex: Female

DRUGS (7)
  1. NEXIUM [Suspect]
     Dates: end: 20090709
  2. HEPARIN [Suspect]
     Route: 042
     Dates: end: 20090707
  3. VANCOMYCIN [Suspect]
     Route: 042
     Dates: end: 20090709
  4. ROCEPHIN [Suspect]
     Route: 042
     Dates: end: 20090709
  5. TAZOCILLIN [Suspect]
     Route: 042
     Dates: end: 20090709
  6. AMIKLIN [Suspect]
     Route: 042
     Dates: end: 20090709
  7. HYDROCORTISONE [Suspect]
     Route: 042
     Dates: start: 20090706, end: 20090709

REACTIONS (2)
  - RECTAL HAEMORRHAGE [None]
  - THROMBOCYTOPENIA [None]
